FAERS Safety Report 24701564 (Version 1)
Quarter: 2024Q4

REPORT INFORMATION
  Report Type: Spontaneous
  Country: FI (occurrence: FI)
  Receive Date: 20241205
  Receipt Date: 20241205
  Transmission Date: 20250115
  Serious: Yes (Other)
  Sender: TEVA
  Company Number: FI-TEVA-VS-3206167

PATIENT
  Age: 26 Year
  Sex: Female

DRUGS (5)
  1. AJOVY [Suspect]
     Active Substance: FREMANEZUMAB-VFRM
     Indication: Migraine
     Dosage: FIRST DOSE
     Route: 058
     Dates: start: 20200918
  2. AJOVY [Suspect]
     Active Substance: FREMANEZUMAB-VFRM
     Indication: Migraine
     Dosage: FOURTH DOSE
     Route: 058
     Dates: start: 20201211
  3. AJOVY [Suspect]
     Active Substance: FREMANEZUMAB-VFRM
     Indication: Migraine
     Dosage: SECOND DOSE
     Route: 058
     Dates: start: 20201016
  4. AJOVY [Suspect]
     Active Substance: FREMANEZUMAB-VFRM
     Indication: Migraine
     Dosage: THIRD DOSE
     Route: 058
     Dates: start: 20201113
  5. METOPROLOL [Concomitant]
     Active Substance: METOPROLOL
     Indication: Migraine prophylaxis
     Route: 065

REACTIONS (4)
  - Gestational diabetes [Unknown]
  - Inappropriate schedule of product administration [Unknown]
  - Maternal exposure during pregnancy [Unknown]
  - Live birth [Unknown]

NARRATIVE: CASE EVENT DATE: 20200101
